FAERS Safety Report 12306395 (Version 1)
Quarter: 2016Q2

REPORT INFORMATION
  Report Type: Spontaneous
  Country: IL (occurrence: IL)
  Receive Date: 20160426
  Receipt Date: 20160426
  Transmission Date: 20160815
  Serious: Yes (Other)
  Sender: FDA-Public Use
  Company Number: IL-PFIZER INC-2016117816

PATIENT
  Age: 69 Year
  Sex: Male

DRUGS (1)
  1. ELELYSO [Suspect]
     Active Substance: TALIGLUCERASE ALFA
     Indication: GAUCHER^S DISEASE
     Dosage: 3800 UNITS PER MONTH
     Route: 042

REACTIONS (5)
  - Pruritus [Unknown]
  - Perineal erythema [Unknown]
  - Benign neoplasm of bladder [Unknown]
  - Prostatomegaly [Unknown]
  - Fungal skin infection [Unknown]
